FAERS Safety Report 10707798 (Version 2)
Quarter: 2015Q1

REPORT INFORMATION
  Report Type: Spontaneous
  Country: CN (occurrence: CN)
  Receive Date: 20150113
  Receipt Date: 20150113
  Transmission Date: 20150721
  Serious: Yes (Death, Life-Threatening, Other)
  Sender: FDA-Public Use
  Company Number: PHHY2014CN104643

PATIENT
  Age: 20 Year
  Sex: Male

DRUGS (1)
  1. TASIGNA [Suspect]
     Active Substance: NILOTINIB
     Indication: CHRONIC MYELOID LEUKAEMIA
     Dosage: 400 MG, QD
     Route: 048
     Dates: start: 20140621, end: 20140731

REACTIONS (8)
  - Rash generalised [Unknown]
  - Rash [Recovering/Resolving]
  - Shock [Recovering/Resolving]
  - Bacterial infection [Recovering/Resolving]
  - Death [Fatal]
  - Rectal ulcer [Recovering/Resolving]
  - Abdominal pain [Recovering/Resolving]
  - Sepsis [Unknown]

NARRATIVE: CASE EVENT DATE: 20140826
